FAERS Safety Report 9033179 (Version 1)
Quarter: 2013Q1

REPORT INFORMATION
  Report Type: Spontaneous
  Country: US (occurrence: US)
  Receive Date: 20130128
  Receipt Date: 20130128
  Transmission Date: 20140127
  Serious: Yes (Other)
  Sender: FDA-Public Use
  Company Number: US-SANOFI-AVENTIS-2013SA005682

PATIENT
  Sex: Female

DRUGS (1)
  1. AMBIEN [Suspect]
     Dates: start: 2005

REACTIONS (2)
  - Benzodiazepine drug level [Unknown]
  - Drug tolerance [Unknown]
